FAERS Safety Report 4971739-4 (Version None)
Quarter: 2006Q2

REPORT INFORMATION
  Report Type: 
  Country: None (occurrence: None)
  Receive Date: 20060406
  Receipt Date: 20060307
  Transmission Date: 20061013
  Serious: Yes (Death)
  Sender: FDA-Public Use
  Company Number: 2006043910

PATIENT
  Age: 40 Year
  Sex: Male

DRUGS (2)
  1. GEODON [Suspect]
     Indication: ILL-DEFINED DISORDER
  2. MELLARIL [Concomitant]

REACTIONS (2)
  - CORONARY ARTERY DISEASE [None]
  - SUDDEN DEATH [None]
